FAERS Safety Report 26002585 (Version 1)
Quarter: 2025Q4

REPORT INFORMATION
  Report Type: Spontaneous
  Country: IN (occurrence: IN)
  Receive Date: 20251106
  Receipt Date: 20251106
  Transmission Date: 20260119
  Serious: Yes (Other)
  Sender: AMGEN
  Company Number: IN-AMGEN-INDSP2025215772

PATIENT
  Age: 20 Year
  Sex: Female

DRUGS (1)
  1. XGEVA [Suspect]
     Active Substance: DENOSUMAB
     Indication: Bone giant cell tumour benign
     Dosage: 120 MILLIGRAM, Q3MO
     Route: 026

REACTIONS (2)
  - Bone giant cell tumour benign [Unknown]
  - Off label use [Unknown]
